FAERS Safety Report 7441778-2 (Version None)
Quarter: 2011Q2

REPORT INFORMATION
  Report Type: 
  Country: None (occurrence: None)
  Receive Date: 20110426
  Receipt Date: 20110426
  Transmission Date: 20111010
  Serious: No
  Sender: FDA-Public Use
  Company Number: None

PATIENT

DRUGS (15)
  1. ASPIRIN [Concomitant]
  2. SIMVASTATIN [Concomitant]
  3. LASIX [Concomitant]
  4. DITROPAN [Concomitant]
  5. AMIODARONE HCL [Concomitant]
  6. COREG [Concomitant]
  7. NITROGLYCERIN [Concomitant]
  8. PHENOBARBITAL TAB [Concomitant]
  9. ALDACTONE [Concomitant]
  10. GLIPIZIDE [Concomitant]
  11. DARVOCET [Suspect]
  12. AMLODIPINE BESYLATE [Concomitant]
  13. PLAVIX [Concomitant]
  14. GLUCOTROL [Concomitant]
  15. DIOVAN [Concomitant]

REACTIONS (8)
  - MYOCARDIAL INFARCTION [None]
  - VASCULAR GRAFT [None]
  - ARTERIAL OCCLUSIVE DISEASE [None]
  - DIABETES MELLITUS [None]
  - HYPERLIPIDAEMIA [None]
  - HYPERTENSION [None]
  - VENTRICULAR TACHYCARDIA [None]
  - ISCHAEMIC CARDIOMYOPATHY [None]
